FAERS Safety Report 15899511 (Version 1)
Quarter: 2019Q1

REPORT INFORMATION
  Report Type: Spontaneous
  Country: US (occurrence: US)
  Receive Date: 20190110
  Receipt Date: 20190110
  Transmission Date: 20190417
  Serious: Yes (Hospitalization)
  Sender: FDA-Public Use
  Company Number: None

PATIENT
  Age: 72 Year
  Sex: Female

DRUGS (1)
  1. IBRANCE [Suspect]
     Active Substance: PALBOCICLIB
     Indication: BREAST CANCER
     Route: 048
     Dates: start: 20181030, end: 20181129

REACTIONS (4)
  - Renal disorder [None]
  - Cardiac disorder [None]
  - Pneumonia [None]
  - Type 2 diabetes mellitus [None]

NARRATIVE: CASE EVENT DATE: 20190108
